FAERS Safety Report 15132421 (Version 8)
Quarter: 2020Q1

REPORT INFORMATION
  Report Type: Report from Study
  Country: CZ (occurrence: CZ)
  Receive Date: 20180711
  Receipt Date: 20200312
  Transmission Date: 20200409
  Serious: Yes (Hospitalization, Disabling, Other)
  Sender: FDA-Public Use
  Company Number: CZ-AMGEN-CZECT2018045448

PATIENT
  Age: 67 Year
  Sex: Male
  Weight: 104 kg

DRUGS (15)
  1. MODURETIC 5-50 [Concomitant]
     Active Substance: AMILORIDE HYDROCHLORIDE\HYDROCHLOROTHIAZIDE
     Dosage: 1 UNK
     Dates: start: 20180221, end: 20180403
  2. SALINE [SODIUM CHLORIDE] [Concomitant]
     Active Substance: SODIUM CHLORIDE
     Dosage: 60-500 MILLILITER
     Route: 042
     Dates: start: 20171220, end: 20180430
  3. EBRANTIL [Concomitant]
     Active Substance: URAPIDIL
     Dosage: 30 MILLIGRAM
     Dates: start: 20180327, end: 20180405
  4. MILURIT [Concomitant]
     Active Substance: ALLOPURINOL
     Dosage: 100 MILLIGRAM
     Dates: start: 20161122, end: 20180406
  5. NOLPAZA [Concomitant]
     Active Substance: PANTOPRAZOLE SODIUM
     Dosage: 20 MILLIGRAM
     Route: 048
     Dates: start: 20170421
  6. PLATELETS [Concomitant]
     Active Substance: HUMAN PLATELET, ALLOGENIC
     Dosage: 1 UNK
     Dates: start: 20180109, end: 20180116
  7. BETALOC ZOK [Concomitant]
     Active Substance: METOPROLOL SUCCINATE
     Dosage: 50 MILLIGRAM
     Dates: start: 20180306, end: 20180403
  8. BISEPTOL [Concomitant]
     Active Substance: SULFAMETHOXAZOLE\TRIMETHOPRIM
     Dosage: 480 MILLIGRAM
     Route: 048
     Dates: start: 20170421
  9. AGEN [Concomitant]
     Active Substance: AMLODIPINE BESYLATE
     Dosage: 10 MILLIGRAM AND 1 UNK
     Dates: start: 20180302
  10. VALACICLOVIR [Concomitant]
     Active Substance: VALACYCLOVIR HYDROCHLORIDE
     Dosage: 500 MILLIGRAM
     Route: 048
     Dates: start: 20171220
  11. CARFILZOMIB [Suspect]
     Active Substance: CARFILZOMIB
     Indication: PLASMA CELL MYELOMA
     Dosage: UNK MILLIGRAM, PER CHEMO REGIM
     Route: 042
     Dates: start: 20171220
  12. PRESTARIUM [Concomitant]
     Active Substance: PERINDOPRIL
     Dosage: 2.5 MILLIGRAM
     Dates: start: 20171205
  13. DEXAMETHASONE. [Concomitant]
     Active Substance: DEXAMETHASONE
     Indication: PLASMA CELL MYELOMA
     Dosage: 20-40 MILLIGRAM
     Route: 048
     Dates: start: 20180103
  14. ZARZIO [Concomitant]
     Active Substance: FILGRASTIM
     Dosage: 48 UNK AND 48 INTERNATIONAL UNIT
     Dates: start: 20171227, end: 20180116
  15. LOZAP [OMEPRAZOLE] [Concomitant]
     Dosage: 50-100 MILLIGRAM
     Dates: start: 20180213, end: 20180413

REACTIONS (2)
  - Acute kidney injury [Recovered/Resolved]
  - Venoocclusive liver disease [Recovered/Resolved]

NARRATIVE: CASE EVENT DATE: 20180403
